FAERS Safety Report 9273051 (Version 2)
Quarter: 2013Q3

REPORT INFORMATION
  Report Type: Spontaneous
  Country: SE (occurrence: SE)
  Receive Date: 20130506
  Receipt Date: 20130801
  Transmission Date: 20140515
  Serious: Yes (Death, Other)
  Sender: FDA-Public Use
  Company Number: SE-ASTRAZENECA-2013SE30707

PATIENT
  Age: 60 Year
  Sex: Male

DRUGS (4)
  1. ATACAND [Suspect]
     Route: 048
  2. METOPROLOL [Suspect]
     Route: 048
     Dates: start: 20130326
  3. FURIX [Suspect]
     Route: 048
     Dates: start: 20130326
  4. PREDNISOLON [Concomitant]

REACTIONS (4)
  - Toxic epidermal necrolysis [Fatal]
  - Adverse drug reaction [Fatal]
  - Pruritus [Fatal]
  - Rash [Fatal]
